FAERS Safety Report 8576091-3 (Version None)
Quarter: 2012Q3

REPORT INFORMATION
  Report Type: 
  Country: None (occurrence: None)
  Receive Date: 20120724
  Receipt Date: 20120712
  Transmission Date: 20120928
  Serious: Yes (Hospitalization)
  Sender: FDA-Public Use
  Company Number: CA-008373

PATIENT
  Sex: Male

DRUGS (2)
  1. TYLENOL WITH CODEIN /00116401/ [Concomitant]
  2. FIRMAGON [Suspect]
     Indication: PROSTATE CANCER
     Dosage: (SUBCUTANEOUS)
     Route: 058
     Dates: start: 20120411, end: 20120606

REACTIONS (3)
  - PELVIC PAIN [None]
  - BONE PAIN [None]
  - BACK PAIN [None]
